FAERS Safety Report 15923484 (Version 2)
Quarter: 2019Q1

REPORT INFORMATION
  Report Type: Spontaneous
  Country: ES (occurrence: ES)
  Receive Date: 20190206
  Receipt Date: 20190226
  Transmission Date: 20190417
  Serious: Yes (Death, Hospitalization, Other)
  Sender: FDA-Public Use
  Company Number: ES-ACCORD-105528

PATIENT
  Age: 62 Year
  Sex: Male

DRUGS (11)
  1. LEVOTHYROXINE. [Suspect]
     Active Substance: LEVOTHYROXINE
     Indication: HYPOTHYROIDISM
     Dosage: 100-200 MG,150 MCG, DAILY, (3-0-0-0) CHRONIC
     Route: 065
  2. CLONAZEPAM. [Suspect]
     Active Substance: CLONAZEPAM
     Indication: EPILEPSY
     Dosage: STRENGTH 0.5 MG,1-1-1-1CHRONIC,8 MG, PER DAY
     Route: 065
  3. METFORMIN [Interacting]
     Active Substance: METFORMIN HYDROCHLORIDE
     Indication: TYPE 2 DIABETES MELLITUS
     Dosage: 850 MG, BID (0-1-1-0) CHRONIC,3400 MG, PER DAY
     Route: 048
  4. TIOTROPIO [Suspect]
     Active Substance: TIOTROPIUM BROMIDE
     Indication: CHRONIC OBSTRUCTIVE PULMONARY DISEASE
     Dosage: 2 PUFFS,2.5 MCG / PULS TAKEN,25 MG, 1X1
     Route: 065
  5. HALOPERIDOL. [Interacting]
     Active Substance: HALOPERIDOL
     Indication: PSYCHOTIC DISORDER
     Dosage: STRENGTH 5MG,15 MG, TID 1-1-1-0, CHRONIC,45 MG, PER DAY
     Route: 065
  6. QUETIAPINE. [Interacting]
     Active Substance: QUETIAPINE
     Indication: DEPRESSION
     Dosage: 400 MG, TID 1-1-1-0.3600 MG, QD ADDITIONAL DOSE,1200 MG, QD
     Route: 065
  7. LORATADINE. [Interacting]
     Active Substance: LORATADINE
     Indication: RHINITIS ALLERGIC
     Dosage: 1-0-0-0,10 MG, QD
     Route: 048
  8. FLUTICASONE/SALMETEROL [Interacting]
     Active Substance: FLUTICASONE PROPIONATE\SALMETEROL XINAFOATE
     Indication: ASTHMA
     Dosage: STRENGTH 250/25 MCG,1-0-1-0 2 INHALACIONES, 4 DF, QD
     Route: 055
  9. QUETIAPINA [Interacting]
     Active Substance: QUETIAPINE
     Indication: SCHIZOPHRENIA
     Dosage: 1-1-1-0
     Route: 065
  10. VALPROATE BISMUTH/VALPROATE MAGNESIUM/VALPROATE SEMISODIUM/VALPROATE SODIUM/VALPROIC ACID [Interacting]
     Active Substance: VALPROIC ACID
     Indication: MANIA
     Dosage: STRENGTH 500 MG,500 MG, TID 1-1-1-0, CHRONIC
     Route: 065
  11. ACIDO VALPROICO [Interacting]
     Active Substance: VALPROIC ACID
     Indication: EPILEPSY
     Dosage: 1-1-1-0
     Route: 065

REACTIONS (10)
  - Drug interaction [Fatal]
  - Prescribed overdose [Fatal]
  - Hyperprolactinaemia [Unknown]
  - Ventricular fibrillation [Fatal]
  - Pruritus [Unknown]
  - Coma [Not Recovered/Not Resolved]
  - Cardiac failure [Fatal]
  - Hypothyroidism [Unknown]
  - Loss of consciousness [Not Recovered/Not Resolved]
  - Type 2 diabetes mellitus [Unknown]
